FAERS Safety Report 7100272-9 (Version None)
Quarter: 2010Q4

REPORT INFORMATION
  Report Type: 
  Country: None (occurrence: None)
  Receive Date: 20101112
  Receipt Date: 20101103
  Transmission Date: 20110411
  Serious: Yes (Hospitalization, Other)
  Sender: FDA-Public Use
  Company Number: PHHO2010IL16685

PATIENT
  Sex: Male
  Weight: 74 kg

DRUGS (4)
  1. ACZ885 ACZ+ [Suspect]
     Dosage: 56 MG
     Dates: start: 20100421, end: 20100906
  2. ACZ885 ACZ+ [Suspect]
     Dosage: 56 MG
     Route: 058
     Dates: start: 20101005
  3. RESPRIN [Concomitant]
  4. DERALIN [Concomitant]

REACTIONS (8)
  - COUGH [None]
  - DYSPNOEA [None]
  - LEUKOPENIA [None]
  - PNEUMONIA BACTERIAL [None]
  - PYREXIA [None]
  - RHINITIS [None]
  - RHINORRHOEA [None]
  - THROMBOCYTOPENIA [None]
